FAERS Safety Report 9634144 (Version 1)
Quarter: 2013Q4

REPORT INFORMATION
  Report Type: Spontaneous
  Country: GB (occurrence: GB)
  Receive Date: 20131021
  Receipt Date: 20131021
  Transmission Date: 20140711
  Serious: Yes (Other)
  Sender: FDA-Public Use
  Company Number: GB-PFIZER INC-2013296016

PATIENT
  Age: 39 Year
  Sex: Male
  Weight: 77.11 kg

DRUGS (5)
  1. LYRICA [Suspect]
     Indication: ANALGESIC THERAPY
     Dosage: 600 MG, UNK
     Route: 048
     Dates: start: 20100801, end: 20130930
  2. ZOMORPH [Concomitant]
     Dosage: 200 MG, UNK
  3. ROBAXIN [Concomitant]
     Dosage: 750 MG, UNK
  4. LANSOPRAZOLE [Concomitant]
     Dosage: UNK
  5. DOMPERIDONE [Concomitant]
     Dosage: UNK

REACTIONS (10)
  - Drug withdrawal syndrome [Not Recovered/Not Resolved]
  - Nausea [Not Recovered/Not Resolved]
  - Diarrhoea [Not Recovered/Not Resolved]
  - Insomnia [Not Recovered/Not Resolved]
  - Tinnitus [Not Recovered/Not Resolved]
  - Restless legs syndrome [Not Recovered/Not Resolved]
  - Discomfort [Not Recovered/Not Resolved]
  - Lethargy [Unknown]
  - Memory impairment [Unknown]
  - Abdominal discomfort [Not Recovered/Not Resolved]
